FAERS Safety Report 15467626 (Version 2)
Quarter: 2018Q4

REPORT INFORMATION
  Report Type: Report from Study
  Country: GB (occurrence: GB)
  Receive Date: 20181005
  Receipt Date: 20181009
  Transmission Date: 20190204
  Serious: Yes (Hospitalization, Other)
  Sender: FDA-Public Use
  Company Number: GB-ROCHE-1527879

PATIENT
  Sex: Female

DRUGS (5)
  1. MELOXICAM. [Concomitant]
     Active Substance: MELOXICAM
  2. FOLIC ACID. [Concomitant]
     Active Substance: FOLIC ACID
  3. METHOTREXATE. [Concomitant]
     Active Substance: METHOTREXATE
  4. TRAMADOL. [Concomitant]
     Active Substance: TRAMADOL
  5. ROACTEMRA [Suspect]
     Active Substance: TOCILIZUMAB
     Indication: RHEUMATOID ARTHRITIS
     Route: 058
     Dates: start: 20141023

REACTIONS (11)
  - Feeling abnormal [Unknown]
  - Immunodeficiency [Unknown]
  - Rash [Unknown]
  - Musculoskeletal stiffness [Unknown]
  - Cough [Unknown]
  - Pneumonia [Unknown]
  - Epilepsy [Unknown]
  - Oropharyngeal pain [Unknown]
  - Sepsis [Unknown]
  - Lower respiratory tract infection [Unknown]
  - Infection [Unknown]

NARRATIVE: CASE EVENT DATE: 20160720
